FAERS Safety Report 7248587-8 (Version None)
Quarter: 2011Q1

REPORT INFORMATION
  Report Type: 
  Country: None (occurrence: None)
  Receive Date: 20110128
  Receipt Date: 20101227
  Transmission Date: 20110831
  Serious: Yes (Hospitalization)
  Sender: FDA-Public Use
  Company Number: IT-BAYER-2010-008558

PATIENT
  Sex: Female

DRUGS (2)
  1. VALPRESSION [Concomitant]
     Indication: HYPERTENSION
     Dosage: 1 DF, QD
     Route: 048
  2. ASPIRIN [Suspect]
     Indication: PROPHYLAXIS
     Dosage: 100 MG, QD
     Route: 048
     Dates: start: 20090101, end: 20101128

REACTIONS (2)
  - CEREBRAL HAEMORRHAGE [None]
  - NERVOUS SYSTEM DISORDER [None]
